FAERS Safety Report 15442356 (Version 1)
Quarter: 2018Q3

REPORT INFORMATION
  Report Type: Spontaneous
  Country: IT (occurrence: IT)
  Receive Date: 20180928
  Receipt Date: 20180928
  Transmission Date: 20181010
  Serious: Yes (Hospitalization)
  Sender: FDA-Public Use
  Company Number: IT-SA-2018SA264834

PATIENT
  Age: 36 Year
  Sex: Male

DRUGS (6)
  1. BENEPALI [Suspect]
     Active Substance: ETANERCEPT
     Indication: RHEUMATOID ARTHRITIS
     Dosage: 50 MG, QW
     Route: 058
     Dates: start: 20180502, end: 20180727
  2. DIBASE [Concomitant]
     Active Substance: CHOLECALCIFEROL
  3. ARAVA [Suspect]
     Active Substance: LEFLUNOMIDE
     Indication: RHEUMATOID ARTHRITIS
     Dosage: 20 MG, QD
     Route: 048
     Dates: start: 20180410, end: 20180727
  4. PANTORC [Concomitant]
     Active Substance: PANTOPRAZOLE SODIUM
  5. MEDROL [METHYLPREDNISOLONE] [Concomitant]
     Dosage: UNK UNK, UNK
  6. CARDIOASPIRIN [Concomitant]
     Active Substance: ASPIRIN
     Dosage: UNK

REACTIONS (2)
  - Pneumonia [Recovering/Resolving]
  - Acute respiratory failure [Recovering/Resolving]

NARRATIVE: CASE EVENT DATE: 20180727
